FAERS Safety Report 4522114-8 (Version None)
Quarter: 2004Q4

REPORT INFORMATION
  Report Type: 
  Country: None (occurrence: None)
  Receive Date: 20041206
  Receipt Date: 20041122
  Transmission Date: 20050328
  Serious: Yes (Life-Threatening)
  Sender: FDA-Public Use
  Company Number: 2004228034FR

PATIENT
  Age: 18 Month
  Sex: Male

DRUGS (9)
  1. VANTIN [Suspect]
     Indication: ILL-DEFINED DISORDER
     Dosage: ORAL
     Route: 048
     Dates: start: 20040216, end: 20040216
  2. METOCLOPRAMIDE HYDROCHLORIDE [Suspect]
     Indication: ILL-DEFINED DISORDER
     Dosage: ORAL
     Route: 048
     Dates: start: 20040212, end: 20040216
  3. IBUPROFEN [Suspect]
     Indication: ILL-DEFINED DISORDER
     Dosage: ORAL
     Route: 048
     Dates: start: 20040214, end: 20040216
  4. NIFUROXAZIDE (NIFUROXAZIDE) [Concomitant]
     Indication: ILL-DEFINED DISORDER
     Dosage: ORAL
     Route: 048
     Dates: start: 20040214, end: 20040216
  5. MAXILASE-BACITRACINE (ALPHA-AMYLASE BACTERIAL, BACITRACIN) [Concomitant]
  6. TIXOCORTOL PIVALATE (TIXOCORTOL PIVALATE) [Concomitant]
  7. ACETAMINOPHEN [Concomitant]
  8. DOMPERIDONE (DOMPERIDONE) [Concomitant]
  9. SMECTA / OLD FORM / (ALUMINIUM HYDROXIDE-MAGNESIUM CARBONATE GEL, ALUM [Concomitant]

REACTIONS (24)
  - AUTOIMMUNE DISORDER [None]
  - CARDIOMEGALY [None]
  - CHLAMYDIA SEROLOGY POSITIVE [None]
  - COOMBS DIRECT TEST POSITIVE [None]
  - DEHYDRATION [None]
  - GASTROENTERITIS [None]
  - HAEMATURIA [None]
  - HAEMOLYTIC ANAEMIA [None]
  - HEART RATE INCREASED [None]
  - HEPATO-LENTICULAR DEGENERATION [None]
  - JAUNDICE [None]
  - KIDNEY ENLARGEMENT [None]
  - LEUKOCYTOSIS [None]
  - MYCOPLASMA SEROLOGY POSITIVE [None]
  - NORMOCHROMIC NORMOCYTIC ANAEMIA [None]
  - OTITIS MEDIA [None]
  - OXYGEN SATURATION DECREASED [None]
  - PALLOR [None]
  - PERITONEAL DIALYSIS [None]
  - PROTEINURIA [None]
  - RENAL FAILURE ACUTE [None]
  - RENAL TUBULAR NECROSIS [None]
  - SPHEROCYTIC ANAEMIA [None]
  - VIRUS SEROLOGY TEST POSITIVE [None]
